FAERS Safety Report 6426019-7 (Version None)
Quarter: 2009Q4

REPORT INFORMATION
  Report Type: 
  Country: None (occurrence: None)
  Receive Date: 20091104
  Receipt Date: 20091026
  Transmission Date: 20100525
  Serious: Yes (Hospitalization)
  Sender: FDA-Public Use
  Company Number: DE-RANBAXY-2009RR-28853

PATIENT
  Age: 85 Year
  Sex: Female
  Weight: 69 kg

DRUGS (7)
  1. RAMIPRIL [Suspect]
     Indication: HYPERTENSION
     Dosage: 5 MG, QD
     Route: 048
     Dates: start: 20070801
  2. SULPIRIDE [Suspect]
     Dosage: 50 MG, QD
     Route: 048
  3. ACETYLSALICYLIC ACID [Concomitant]
     Indication: CORONARY ARTERY DISEASE
     Dosage: 100 MG, QD
     Route: 048
  4. ACTRAPID HUMAN [Concomitant]
     Indication: TYPE 2 DIABETES MELLITUS
     Dosage: UNK
     Route: 058
     Dates: start: 20070101
  5. DIGITOXIN INJ [Concomitant]
     Indication: ATRIAL FIBRILLATION
     Dosage: 0.07 MG, QD
     Route: 048
     Dates: start: 20070801
  6. LANTUS [Concomitant]
     Indication: TYPE 2 DIABETES MELLITUS
     Dosage: 22 IU, QD
     Route: 058
     Dates: start: 20070801
  7. NITRENDIPINE [Concomitant]
     Indication: HYPERTENSION
     Dosage: 10 MG, QD
     Route: 048

REACTIONS (1)
  - FAECALOMA [None]
